FAERS Safety Report 8471327-1 (Version None)
Quarter: 2012Q2

REPORT INFORMATION
  Report Type: 
  Country: None (occurrence: None)
  Receive Date: 20120627
  Receipt Date: 20120625
  Transmission Date: 20120825
  Serious: Yes (Other)
  Sender: FDA-Public Use
  Company Number: FR-GILEAD-2012-0057026

PATIENT
  Sex: Male

DRUGS (6)
  1. TRUVADA [Suspect]
     Indication: HIV INFECTION
     Dosage: UNK
     Dates: start: 20050101, end: 20120101
  2. PRAZEPAM [Concomitant]
  3. DEPAKOTE [Concomitant]
  4. NORVIR [Concomitant]
     Dosage: UNK
     Dates: start: 20050101
  5. REYATAZ [Concomitant]
     Dosage: UNK
     Dates: start: 20050101
  6. MIRTAZAPINE [Concomitant]

REACTIONS (6)
  - BLOOD ALKALINE PHOSPHATASE INCREASED [None]
  - VITAMIN D DECREASED [None]
  - BONE PAIN [None]
  - HYPOPHOSPHATAEMIA [None]
  - OSTEOMALACIA [None]
  - FANCONI SYNDROME ACQUIRED [None]
